FAERS Safety Report 6437530-7 (Version None)
Quarter: 2009Q4

REPORT INFORMATION
  Report Type: 
  Country: None (occurrence: None)
  Receive Date: 20091112
  Receipt Date: 20091105
  Transmission Date: 20100525
  Serious: Yes (Other)
  Sender: FDA-Public Use
  Company Number: US-PFIZER INC-2008091546

PATIENT
  Sex: Male
  Weight: 68 kg

DRUGS (8)
  1. ATGAM [Suspect]
     Indication: HEART TRANSPLANT
     Dosage: 1000 MG, 1X/DAY
     Route: 042
     Dates: start: 20081021
  2. CYCLOSPORINE [Concomitant]
  3. MYCOPHENOLATE SODIUM [Concomitant]
  4. PRAVASTATIN [Concomitant]
  5. BACTRIM [Concomitant]
  6. VALGANCICLOVIR HCL [Concomitant]
  7. INSULIN [Concomitant]
  8. STEROID ANTIBACTERIALS [Concomitant]

REACTIONS (2)
  - CD4 LYMPHOCYTES INCREASED [None]
  - CD8 LYMPHOCYTES INCREASED [None]
